FAERS Safety Report 10238820 (Version 1)
Quarter: 2014Q1

REPORT INFORMATION
  Report Type: Spontaneous
  Country: US (occurrence: None)
  Receive Date: 20140306
  Receipt Date: 20140306
  Transmission Date: 20141002
  Serious: Yes (Hospitalization, Other)
  Sender: FDA-Public Use
  Company Number: 163-21880-13080957

PATIENT
  Age: 74 Year
  Sex: Female
  Weight: 69.58 kg

DRUGS (4)
  1. REVLIMID (LENALIDOMIDE) (5 MILLIGRAM, CAPSULES) [Suspect]
     Indication: PLASMA CELL MYELOMA
     Dosage: 5 MG, 14 IN 21 D, PO
     Route: 048
     Dates: start: 201306
  2. ANTIBIOTICS (ANTIBIOTICS) (UNKNOWN) [Concomitant]
  3. LORTAB (VICODIN) (UNKNOWN) [Concomitant]
  4. HYDROCODONE/ACETAMINOPHEN (REMEDEINE) (TABLETS) [Concomitant]

REACTIONS (3)
  - Thrombosis in device [None]
  - Deep vein thrombosis [None]
  - Staphylococcal infection [None]
